FAERS Safety Report 23281425 (Version 1)
Quarter: 2023Q4

REPORT INFORMATION
  Report Type: Other
  Country: GB (occurrence: GB)
  Receive Date: 20231211
  Receipt Date: 20231211
  Transmission Date: 20240110
  Serious: Yes (Other)
  Sender: FDA-Public Use
  Company Number: None

PATIENT

DRUGS (9)
  1. DEXAMETHASONE [Suspect]
     Active Substance: DEXAMETHASONE
     Indication: Product used for unknown indication
     Dosage: 6.6 MG, TID (6.6MG/2ML. 8 DOSES POST-OP (INPATIENT MEDICATION))
     Route: 065
     Dates: start: 20230812
  2. PREGABALIN [Concomitant]
     Active Substance: PREGABALIN
     Indication: Product used for unknown indication
     Dosage: 150 MG, BID (TAKING)
     Route: 065
  3. AMOXICILLIN [Concomitant]
     Active Substance: AMOXICILLIN
     Indication: Product used for unknown indication
     Dosage: 10 ML, TID (250MG/5ML)
     Route: 065
  4. PENICILLIN V [Concomitant]
     Active Substance: PENICILLIN V
     Indication: Product used for unknown indication
     Dosage: 500 MG, QID
     Route: 065
  5. CLARITHROMYCIN [Concomitant]
     Active Substance: CLARITHROMYCIN
     Indication: Product used for unknown indication
     Dosage: 500 MG, BID
     Route: 065
  6. TRAMADOL [Concomitant]
     Active Substance: TRAMADOL\TRAMADOL HYDROCHLORIDE
     Indication: Pain
     Dosage: 1 OR 2 FOUR TIMES A DAY IF NEEDED. DO NOT TAKE ANY CODEINE WITH THIS MEDICATION.
     Route: 065
  7. ACETAMINOPHEN [Concomitant]
     Active Substance: ACETAMINOPHEN
     Indication: Product used for unknown indication
     Dosage: 250MG/5ML. 2-4 5ML SPOONFULS EVERY 4-6 HOURS WHEN NECESSARY. NO MORE THAN 4 DOSES IN 24 HRS - TAKING
     Route: 065
  8. OMEPRAZOLE [Concomitant]
     Active Substance: OMEPRAZOLE
     Indication: Product used for unknown indication
     Dosage: 20 MG, QD
     Route: 065
     Dates: start: 20230630
  9. CODEINE [Concomitant]
     Active Substance: CODEINE
     Indication: Pain
     Dosage: 60 MG, QID (PRESCRIBED: 26-JUN-2023NOT TAKING)
     Route: 065

REACTIONS (1)
  - Hypokalaemia [Unknown]
